FAERS Safety Report 7910178-0 (Version None)
Quarter: 2011Q4

REPORT INFORMATION
  Report Type: 
  Country: None (occurrence: None)
  Receive Date: 20111111
  Receipt Date: 20111031
  Transmission Date: 20120403
  Serious: Yes (Other)
  Sender: FDA-Public Use
  Company Number: ZA-ROCHE-1009653

PATIENT
  Sex: Male

DRUGS (4)
  1. LUCENTIS [Suspect]
     Indication: AGE-RELATED MACULAR DEGENERATION
     Route: 050
  2. LUCENTIS [Suspect]
     Route: 050
     Dates: start: 20110902
  3. LUCENTIS [Suspect]
     Route: 050
     Dates: start: 20110107
  4. LUCENTIS [Suspect]
     Route: 050
     Dates: start: 20110701

REACTIONS (3)
  - RETINAL OEDEMA [None]
  - VISUAL ACUITY REDUCED [None]
  - RETINAL DISORDER [None]
